FAERS Safety Report 8007320-2 (Version None)
Quarter: 2011Q4

REPORT INFORMATION
  Report Type: 
  Country: None (occurrence: None)
  Receive Date: 20111227
  Receipt Date: 20111220
  Transmission Date: 20120403
  Serious: Yes (Hospitalization)
  Sender: FDA-Public Use
  Company Number: FR-ASTELLAS-2011EU009529

PATIENT
  Sex: Male

DRUGS (1)
  1. VESICARE [Suspect]
     Indication: BENIGN PROSTATIC HYPERPLASIA
     Dosage: 1 DF, UNKNOWN/D
     Route: 048
     Dates: start: 20111101

REACTIONS (4)
  - OFF LABEL USE [None]
  - PROSTATITIS [None]
  - URINARY RETENTION [None]
  - URINARY TRACT INFECTION [None]
